FAERS Safety Report 17146002 (Version 1)
Quarter: 2019Q4

REPORT INFORMATION
  Report Type: Report from Study
  Country: JP (occurrence: JP)
  Receive Date: 20191212
  Receipt Date: 20191212
  Transmission Date: 20200122
  Serious: Yes (Other)
  Sender: FDA-Public Use
  Company Number: JP-BIOCODEX SA-201901613

PATIENT

DRUGS (32)
  1. DIACOMIT [Suspect]
     Active Substance: STIRIPENTOL
     Dosage: 1500 MG, QD
     Route: 048
     Dates: start: 20171003
  2. SODIUM VALPROATE [Suspect]
     Active Substance: VALPROATE SODIUM
     Indication: SEVERE MYOCLONIC EPILEPSY OF INFANCY
     Dosage: 1000 MG, QD
     Route: 048
     Dates: end: 20150608
  3. MIDAZOLAM [Concomitant]
     Active Substance: MIDAZOLAM HYDROCHLORIDE
     Dosage: 0.05MG/KG/H P.R.N
     Route: 042
     Dates: start: 20160822, end: 20160920
  4. MIDAZOLAM [Concomitant]
     Active Substance: MIDAZOLAM HYDROCHLORIDE
     Dosage: 0.05MG/KG/H P.R.N
     Route: 042
     Dates: start: 20170209, end: 20170212
  5. MIDAZOLAM [Concomitant]
     Active Substance: MIDAZOLAM HYDROCHLORIDE
     Dosage: 0.05MG/KG/H P.R.N
     Route: 042
     Dates: start: 20170429, end: 20170502
  6. TOPIRAMATE. [Concomitant]
     Active Substance: TOPIRAMATE
     Indication: SEVERE MYOCLONIC EPILEPSY OF INFANCY
     Dosage: 100 MG, QD
     Route: 048
     Dates: end: 20150513
  7. TOPIRAMATE. [Concomitant]
     Active Substance: TOPIRAMATE
     Dosage: 50 MG, QD
     Route: 048
     Dates: start: 20170317
  8. DIACOMIT [Suspect]
     Active Substance: STIRIPENTOL
     Dosage: 1750 MG, QD
     Route: 048
     Dates: start: 20151118, end: 20160314
  9. DIACOMIT [Suspect]
     Active Substance: STIRIPENTOL
     Dosage: 2000 MG, QD
     Route: 048
     Dates: start: 20160315, end: 20170522
  10. SODIUM VALPROATE [Suspect]
     Active Substance: VALPROATE SODIUM
     Dosage: 500 MG, QD
     Route: 048
     Dates: start: 20151007, end: 20151026
  11. SODIUM VALPROATE [Suspect]
     Active Substance: VALPROATE SODIUM
     Dosage: 600 MG, QD
     Route: 048
     Dates: start: 20160510, end: 20170116
  12. MIDAZOLAM [Concomitant]
     Active Substance: MIDAZOLAM HYDROCHLORIDE
     Dosage: 0.05MG/KG/H P.R.N
     Route: 042
     Dates: start: 20170314, end: 20170318
  13. DIACOMIT [Suspect]
     Active Substance: STIRIPENTOL
     Dosage: 1000 MG, QD
     Route: 048
     Dates: start: 20150527, end: 20150602
  14. SODIUM VALPROATE [Suspect]
     Active Substance: VALPROATE SODIUM
     Dosage: 700 MG, QD
     Route: 048
     Dates: start: 20151027, end: 20160509
  15. MYSTAN [Suspect]
     Active Substance: CLOBAZAM
     Indication: SEVERE MYOCLONIC EPILEPSY OF INFANCY
     Dosage: 15 MG, QD
     Route: 048
     Dates: end: 20150509
  16. MYSTAN [Suspect]
     Active Substance: CLOBAZAM
     Dosage: 12 MG, QD
     Route: 048
     Dates: start: 20170704
  17. DIACOMIT [Suspect]
     Active Substance: STIRIPENTOL
     Dosage: 1750 MG, QD
     Route: 048
     Dates: end: 20171002
  18. MYSTAN [Suspect]
     Active Substance: CLOBAZAM
     Dosage: 20 MG, QD
     Route: 048
     Dates: start: 20150510, end: 20161121
  19. MYSTAN [Suspect]
     Active Substance: CLOBAZAM
     Dosage: 15 MG, QD
     Route: 048
     Dates: start: 20161122, end: 20170703
  20. MIDAZOLAM [Concomitant]
     Active Substance: MIDAZOLAM HYDROCHLORIDE
     Dosage: 0.05MG/KG/H
     Route: 042
     Dates: start: 20160503, end: 20160505
  21. SODIUM VALPROATE [Suspect]
     Active Substance: VALPROATE SODIUM
     Dosage: 550 MG, QD
     Route: 048
     Dates: start: 20170117
  22. MIDAZOLAM [Concomitant]
     Active Substance: MIDAZOLAM HYDROCHLORIDE
     Indication: SEVERE MYOCLONIC EPILEPSY OF INFANCY
     Dosage: 0.06MG/KG/H
     Route: 042
     Dates: start: 20150513, end: 20150520
  23. MIDAZOLAM [Concomitant]
     Active Substance: MIDAZOLAM HYDROCHLORIDE
     Dosage: 0.06MG/KG/H
     Route: 042
     Dates: start: 20151013, end: 20151014
  24. MIDAZOLAM [Concomitant]
     Active Substance: MIDAZOLAM HYDROCHLORIDE
     Dosage: 0.05MG/KG/H P.R.N
     Route: 042
     Dates: start: 20161116, end: 20161121
  25. MIDAZOLAM [Concomitant]
     Active Substance: MIDAZOLAM HYDROCHLORIDE
     Dosage: 0.05MG/KG/H P.R.N
     Route: 042
     Dates: start: 20170217, end: 20170222
  26. MIDAZOLAM [Concomitant]
     Active Substance: MIDAZOLAM HYDROCHLORIDE
     Dosage: 0.05MG/KG/H P.R.N
     Route: 042
     Dates: start: 20170418, end: 20170419
  27. DIACOMIT [Suspect]
     Active Substance: STIRIPENTOL
     Indication: SEVERE MYOCLONIC EPILEPSY OF INFANCY
     Dosage: 500 MG, QD
     Route: 048
     Dates: start: 20150521, end: 20150526
  28. DIACOMIT [Suspect]
     Active Substance: STIRIPENTOL
     Dosage: 1500 MG, QD
     Route: 048
     Dates: start: 20150603, end: 20151117
  29. SODIUM VALPROATE [Suspect]
     Active Substance: VALPROATE SODIUM
     Dosage: 800 MG, QD
     Route: 048
     Dates: start: 20150609, end: 20150614
  30. SODIUM VALPROATE [Suspect]
     Active Substance: VALPROATE SODIUM
     Dosage: 600 MG, QD
     Route: 048
     Dates: start: 20150615, end: 20151006
  31. MIDAZOLAM [Concomitant]
     Active Substance: MIDAZOLAM HYDROCHLORIDE
     Dosage: 0.0375MG/KG/H SUBSEQUENT GRADUAL DOSE REDUCTION
     Route: 042
     Dates: start: 20160220, end: 20160224
  32. MIDAZOLAM [Concomitant]
     Active Substance: MIDAZOLAM HYDROCHLORIDE
     Dosage: 0.05MG/KG/H P.R.N
     Route: 042
     Dates: start: 20160613, end: 20160615

REACTIONS (2)
  - Dizziness [Recovered/Resolved]
  - Decreased appetite [Recovered/Resolved]

NARRATIVE: CASE EVENT DATE: 20170504
